FAERS Safety Report 6568544-4 (Version None)
Quarter: 2010Q1

REPORT INFORMATION
  Report Type: 
  Country: None (occurrence: None)
  Receive Date: 20100128
  Receipt Date: 20100113
  Transmission Date: 20100710
  Serious: Yes (Hospitalization)
  Sender: FDA-Public Use
  Company Number: 2009AC000285

PATIENT
  Age: 79 Year
  Sex: Male

DRUGS (47)
  1. DIGOXIN [Suspect]
     Dosage: PO
     Route: 048
     Dates: start: 20060101
  2. AMIODARONE HCL [Concomitant]
  3. ASPIRIN [Concomitant]
  4. COUMADIN [Concomitant]
  5. TOPROL-XL [Concomitant]
  6. LEVOTHYROXINE SODIUM [Concomitant]
  7. PROTONIX [Concomitant]
  8. MINOCYCLINE HCL [Concomitant]
  9. LASIX [Concomitant]
  10. POTASSIUM [Concomitant]
  11. LISINOPRIL [Concomitant]
  12. IMDUR [Concomitant]
  13. VYTORIN [Concomitant]
  14. ALDACTONE [Concomitant]
  15. XANAX [Concomitant]
  16. DIOVAN [Concomitant]
  17. CEPHALEXIN [Concomitant]
  18. PROMETH/COD SYRUP [Concomitant]
  19. FUROSEMIDE [Concomitant]
  20. AMBIEN [Concomitant]
  21. LEVOTHYROXINE SODIUM [Concomitant]
  22. METOPROLOL TARTRATE [Concomitant]
  23. WARFARIN SODIUM [Concomitant]
  24. LISINOPRIL [Concomitant]
  25. POTASSIUM CHLORIDE [Concomitant]
  26. ALLOPURINOL [Concomitant]
  27. TRAZODONE [Concomitant]
  28. HYDROXYZPAM [Concomitant]
  29. SPIRONOLACTONE [Concomitant]
  30. ALPRAZOLAM [Concomitant]
  31. AMITRIPTYLINE HCL [Concomitant]
  32. CLONAZEPAM [Concomitant]
  33. ZOLPIDEM [Concomitant]
  34. ISOSORBIDE [Concomitant]
  35. MINOCYCLINE HCL [Concomitant]
  36. SULFAMETHOXAZOLE AND TRIMETHOPRIM [Concomitant]
  37. METHYLPREDNISOLONE ACETATE [Concomitant]
  38. GLIPIZIDE [Concomitant]
  39. PRINIVIL [Concomitant]
  40. SYNTHROID [Concomitant]
  41. COUMADIN [Concomitant]
  42. PROTONIX [Concomitant]
  43. ASPIRIN [Concomitant]
  44. TOPROL-XL [Concomitant]
  45. GLIPIZIDE [Concomitant]
  46. AMIODARONE HCL [Concomitant]
  47. LEVOTHYROXINE SODIUM [Concomitant]

REACTIONS (21)
  - ASTHENIA [None]
  - ATRIAL FIBRILLATION [None]
  - ATRIOVENTRICULAR BLOCK COMPLETE [None]
  - CHEST DISCOMFORT [None]
  - CONFUSIONAL STATE [None]
  - CORONARY ARTERY STENOSIS [None]
  - DECREASED APPETITE [None]
  - DEHYDRATION [None]
  - DIARRHOEA [None]
  - DIZZINESS [None]
  - DYSLIPIDAEMIA [None]
  - EARLY SATIETY [None]
  - ECONOMIC PROBLEM [None]
  - ELECTROLYTE IMBALANCE [None]
  - FAILURE TO THRIVE [None]
  - HYPONATRAEMIA [None]
  - INCISION SITE HAEMORRHAGE [None]
  - INTERNATIONAL NORMALISED RATIO DECREASED [None]
  - MENTAL STATUS CHANGES [None]
  - MULTIPLE INJURIES [None]
  - TYPE 2 DIABETES MELLITUS [None]
